FAERS Safety Report 7250524-7 (Version None)
Quarter: 2011Q1

REPORT INFORMATION
  Report Type: 
  Country: None (occurrence: None)
  Receive Date: 20110128
  Receipt Date: 20110121
  Transmission Date: 20110831
  Serious: Yes (Hospitalization)
  Sender: FDA-Public Use
  Company Number: PHHO2010FR11501

PATIENT
  Sex: Male
  Weight: 58.9 kg

DRUGS (2)
  1. FTY 720 [Suspect]
     Dosage: 0.5 MG, QD
     Route: 048
     Dates: start: 20090122, end: 20100704
  2. FTY 720 [Suspect]
     Indication: MULTIPLE SCLEROSIS
     Dosage: DOSE BLINDED
     Route: 048
     Dates: start: 20070125, end: 20090115

REACTIONS (4)
  - SURGERY [None]
  - BENIGN LUNG NEOPLASM [None]
  - BENIGN TUMOUR EXCISION [None]
  - PLEURAL DISORDER [None]
